FAERS Safety Report 7246141-5 (Version None)
Quarter: 2011Q1

REPORT INFORMATION
  Report Type: 
  Country: None (occurrence: None)
  Receive Date: 20110126
  Receipt Date: 20110119
  Transmission Date: 20110831
  Serious: Yes (Other)
  Sender: FDA-Public Use
  Company Number: A0908766A

PATIENT
  Sex: Female

DRUGS (1)
  1. PAXIL [Suspect]
     Indication: MENOPAUSE
     Route: 048
     Dates: start: 20070601, end: 20081227

REACTIONS (17)
  - ALCOHOLISM [None]
  - CRYING [None]
  - DIZZINESS [None]
  - SUICIDE ATTEMPT [None]
  - ALCOHOL USE [None]
  - INTENTIONAL SELF-INJURY [None]
  - DISTURBANCE IN ATTENTION [None]
  - DRUG INEFFECTIVE [None]
  - TREMOR [None]
  - OVERDOSE [None]
  - MOTOR DYSFUNCTION [None]
  - RESTLESSNESS [None]
  - PERFORMANCE STATUS DECREASED [None]
  - HYPERSOMNIA [None]
  - ILL-DEFINED DISORDER [None]
  - ATTENTION DEFICIT/HYPERACTIVITY DISORDER [None]
  - BALANCE DISORDER [None]
